FAERS Safety Report 9688978 (Version 1)
Quarter: 2013Q4

REPORT INFORMATION
  Report Type: Spontaneous
  Country: CN (occurrence: CN)
  Receive Date: 20131114
  Receipt Date: 20131114
  Transmission Date: 20140711
  Serious: Yes (Other)
  Sender: FDA-Public Use
  Company Number: CN-GLAXOSMITHKLINE-B0929869A

PATIENT
  Age: 65 Year
  Sex: Male
  Weight: 65 kg

DRUGS (1)
  1. FLUTICASONE/SALMETEROL [Suspect]
     Indication: DYSPNOEA
     Dates: start: 20120816, end: 20120817

REACTIONS (1)
  - Laryngeal oedema [Recovered/Resolved]
